FAERS Safety Report 4439578-0 (Version None)
Quarter: 2004Q3

REPORT INFORMATION
  Report Type: 
  Country: None (occurrence: None)
  Receive Date: 20040902
  Receipt Date: 20040823
  Transmission Date: 20050211
  Serious: Yes (Hospitalization)
  Sender: FDA-Public Use
  Company Number: DE-BRISTOL-MYERS SQUIBB COMPANY-12679304

PATIENT
  Age: 51 Year
  Sex: Female
  Weight: 52 kg

DRUGS (3)
  1. TAXOL [Suspect]
     Indication: OVARIAN CANCER
     Dosage: THERAPY DATES: 07-APR-2004 TO 30-JUN-2004
     Route: 042
     Dates: start: 20040630, end: 20040630
  2. CARBOPLATIN [Suspect]
     Indication: OVARIAN CANCER
     Dosage: THERAPY DATES: 07-APR-2004 TO 30-JUN-2004
     Route: 042
     Dates: start: 20040630, end: 20040630
  3. GEMZAR [Suspect]
     Indication: OVARIAN CANCER
     Dosage: THERAPY DATES: 07-APR-2004 TO 30-JUN-2004
     Route: 042
     Dates: start: 20040630, end: 20040630

REACTIONS (1)
  - PYREXIA [None]
